APPROVED DRUG PRODUCT: SERTRALINE HYDROCHLORIDE
Active Ingredient: SERTRALINE HYDROCHLORIDE
Strength: EQ 25MG BASE
Dosage Form/Route: TABLET;ORAL
Application: A078403 | Product #001 | TE Code: AB
Applicant: GRANULES INDIA LTD
Approved: Jan 8, 2008 | RLD: No | RS: No | Type: RX